FAERS Safety Report 7888668-9 (Version None)
Quarter: 2011Q4

REPORT INFORMATION
  Report Type: 
  Country: None (occurrence: None)
  Receive Date: 20111103
  Receipt Date: 20111027
  Transmission Date: 20120403
  Serious: Yes (Other)
  Sender: FDA-Public Use
  Company Number: JP-BAYER-2011-010260

PATIENT
  Age: 60 Year
  Sex: Male

DRUGS (5)
  1. HIRUDOID [Concomitant]
     Indication: PROPHYLAXIS
     Dosage: UNK
     Route: 061
     Dates: start: 20101129
  2. MIRIPLA [Concomitant]
     Dosage: DAILY DOSE 40 MG
     Route: 013
     Dates: start: 20110512, end: 20110512
  3. URSO 250 [Concomitant]
     Dosage: DAILY DOSE 600 MG
     Route: 048
  4. NEXAVAR [Suspect]
     Indication: HEPATIC NEOPLASM MALIGNANT
     Dosage: DAILY DOSE 400 MG
     Route: 048
     Dates: start: 20101206, end: 20110505
  5. MIRIPLA [Concomitant]
     Indication: REGIONAL CHEMOTHERAPY
     Dosage: DAILY DOSE 40 MG
     Route: 013
     Dates: start: 20110302, end: 20110302

REACTIONS (5)
  - DISORIENTATION [None]
  - HEPATIC ENCEPHALOPATHY [None]
  - ASTERIXIS [None]
  - ALTERED STATE OF CONSCIOUSNESS [None]
  - HYPERTENSION [None]
